FAERS Safety Report 5606589-9 (Version None)
Quarter: 2008Q1

REPORT INFORMATION
  Report Type: 
  Country: None (occurrence: None)
  Receive Date: 20080125
  Receipt Date: 20080109
  Transmission Date: 20080703
  Serious: Yes (Hospitalization)
  Sender: FDA-Public Use
  Company Number: TRP_01015_2008

PATIENT
  Sex: Female
  Weight: 57.6068 kg

DRUGS (2)
  1. RIBASPHERE [Suspect]
     Indication: HEPATITIS C
     Dosage: ((800 MG QD ORAL)
     Route: 048
     Dates: start: 20070515, end: 20071214
  2. INFERGEN [Suspect]
     Indication: HEPATITIS C
     Dosage: (15 UG QD SUBCUTANEOUS)
     Route: 058
     Dates: start: 20070515, end: 20071214

REACTIONS (3)
  - OCCULT BLOOD POSITIVE [None]
  - PYELONEPHRITIS [None]
  - RED BLOOD CELL COUNT ABNORMAL [None]
